FAERS Safety Report 7355770-X (Version None)
Quarter: 2011Q1

REPORT INFORMATION
  Report Type: 
  Country: None (occurrence: None)
  Receive Date: 20110316
  Receipt Date: 20110309
  Transmission Date: 20110831
  Serious: Yes (Death, Hospitalization, Other)
  Sender: FDA-Public Use
  Company Number: AU-MERCK-1011USA02744

PATIENT
  Age: 65 Year
  Sex: Male
  Weight: 84 kg

DRUGS (13)
  1. ALLOPURINOL [Concomitant]
     Route: 065
  2. ATROVENT [Concomitant]
     Route: 065
  3. JANUVIA [Suspect]
     Route: 048
     Dates: start: 20100101
  4. JANUMET [Suspect]
     Route: 048
     Dates: start: 20100701
  5. FLECAINIDE ACETATE [Concomitant]
     Route: 065
  6. TELFAST [Concomitant]
     Route: 065
  7. NEXIUM [Suspect]
     Route: 065
  8. VERAPAMIL [Concomitant]
     Route: 065
  9. SERETIDE [Concomitant]
     Route: 065
  10. ATACAND [Concomitant]
     Route: 065
  11. XALATAN [Concomitant]
     Route: 065
  12. ZYLOPRIM [Concomitant]
     Route: 065
  13. VENTOLIN [Concomitant]
     Route: 065

REACTIONS (5)
  - CHOLANGITIS SCLEROSING [None]
  - GASTROOESOPHAGEAL REFLUX DISEASE [None]
  - BILE DUCT CANCER [None]
  - HEPATOCELLULAR INJURY [None]
  - LIVER INJURY [None]
